FAERS Safety Report 7083960-2 (Version None)
Quarter: 2010Q4

REPORT INFORMATION
  Report Type: 
  Country: None (occurrence: None)
  Receive Date: 20101104
  Receipt Date: 20091006
  Transmission Date: 20110411
  Serious: No
  Sender: FDA-Public Use
  Company Number: US-ABBOTT-09P-163-0601736-00

PATIENT
  Sex: Female

DRUGS (3)
  1. KALETRA [Suspect]
     Indication: HIV INFECTION
     Dosage: 200 MG/50 MG
     Dates: start: 20091003, end: 20091003
  2. ATENOLOL [Concomitant]
     Indication: HYPERTENSION
  3. FLAGYL [Concomitant]
     Indication: VAGINAL INFECTION
     Dates: start: 20090901

REACTIONS (1)
  - DIARRHOEA [None]
